FAERS Safety Report 5310116-3 (Version None)
Quarter: 2007Q2

REPORT INFORMATION
  Report Type: 
  Country: None (occurrence: None)
  Receive Date: 20070427
  Receipt Date: 20070418
  Transmission Date: 20071010
  Serious: Yes (Other)
  Sender: FDA-Public Use
  Company Number: JP-MERCK-0704USA01159

PATIENT
  Age: 52 Year
  Sex: Male

DRUGS (2)
  1. PROPECIA [Suspect]
     Indication: MALE PATTERN BALDNESS
     Route: 048
     Dates: start: 20060901, end: 20070402
  2. TURMERIC [Concomitant]
     Route: 048

REACTIONS (2)
  - HEPATIC FUNCTION ABNORMAL [None]
  - INFLUENZA [None]
